FAERS Safety Report 4772546-8 (Version None)
Quarter: 2005Q3

REPORT INFORMATION
  Report Type: 
  Country: None (occurrence: None)
  Receive Date: 20050915
  Receipt Date: 20050915
  Transmission Date: 20060218
  Serious: Yes (Other)
  Sender: FDA-Public Use
  Company Number: None

PATIENT
  Age: 52 Year
  Sex: Female
  Weight: 48.9885 kg

DRUGS (1)
  1. LEVAQUIN [Suspect]
     Indication: LOCALISED INFECTION
     Dosage: 500 MILLIGRAMS  DAILY  PO
     Route: 048
     Dates: start: 20050906, end: 20050906

REACTIONS (9)
  - ANXIETY [None]
  - DISTURBANCE IN ATTENTION [None]
  - FEAR [None]
  - FEELING ABNORMAL [None]
  - FEELING JITTERY [None]
  - INSOMNIA [None]
  - PARANOIA [None]
  - TENDON RUPTURE [None]
  - TINNITUS [None]
